FAERS Safety Report 4285455-8 (Version None)
Quarter: 2004Q1

REPORT INFORMATION
  Report Type: 
  Country: None (occurrence: None)
  Receive Date: 20040202
  Receipt Date: 20040120
  Transmission Date: 20041129
  Serious: Yes (Hospitalization)
  Sender: FDA-Public Use
  Company Number: US-JNJFOC-20040104032

PATIENT
  Age: 60 Year
  Sex: Female

DRUGS (14)
  1. INFLIXIMAB (INFLIXIMAB, RECOMBINANT) [Suspect]
     Indication: RHEUMATOID ARTHRITIS
     Dosage: INTRAVENOUS
     Route: 042
     Dates: start: 20010417
  2. PREDNISONE [Concomitant]
  3. AVAPRO [Concomitant]
  4. PRILOSEC [Concomitant]
  5. AZULFADINE (SULFASALAZINE) [Concomitant]
  6. DOXEPIN HCL [Concomitant]
  7. FOLIC ACID [Concomitant]
  8. RESTORIL [Concomitant]
  9. PREMARIN [Concomitant]
  10. ALLEGRA [Concomitant]
  11. METHOTREXATE [Concomitant]
  12. CALTRATE (CALCIUM CARBONATE) [Concomitant]
  13. PERCOCET [Concomitant]
  14. OXYCONTIN [Concomitant]

REACTIONS (8)
  - COUGH [None]
  - DYSPNOEA [None]
  - HYPOXIA [None]
  - LUNG INFILTRATION [None]
  - NAUSEA [None]
  - PYREXIA [None]
  - VOMITING [None]
  - WHITE BLOOD CELL COUNT INCREASED [None]
